FAERS Safety Report 4779052-5 (Version None)
Quarter: 2005Q3

REPORT INFORMATION
  Report Type: 
  Country: None (occurrence: None)
  Receive Date: 20050923
  Receipt Date: 20050912
  Transmission Date: 20060218
  Serious: Yes (Death)
  Sender: FDA-Public Use
  Company Number: 2005127187

PATIENT
  Age: 85 Year
  Sex: Female

DRUGS (1)
  1. DALTEPARIN SODIUM [Suspect]
     Indication: THROMBOSIS PROPHYLAXIS
     Dosage: 10000 I.U. (5000 I.U., 2 IN 1 D), SUBCUTANEOUS
     Route: 058
     Dates: start: 20050903, end: 20050905

REACTIONS (1)
  - CEREBRAL HAEMORRHAGE [None]
